FAERS Safety Report 5663506-3 (Version None)
Quarter: 2008Q1

REPORT INFORMATION
  Report Type: 
  Country: None (occurrence: None)
  Receive Date: 20080307
  Receipt Date: 20080225
  Transmission Date: 20080703
  Serious: Yes (Hospitalization, Other)
  Sender: FDA-Public Use
  Company Number: 2008BI003798

PATIENT
  Age: 52 Year
  Sex: Female
  Weight: 47.1741 kg

DRUGS (1)
  1. AVONEX [Suspect]
     Indication: MULTIPLE SCLEROSIS
     Dosage: 30 UG; QW; IM
     Route: 030
     Dates: start: 19990801

REACTIONS (4)
  - BONE GRAFT [None]
  - FALL [None]
  - IMPAIRED HEALING [None]
  - UPPER LIMB FRACTURE [None]
